FAERS Safety Report 5269047-X (Version None)
Quarter: 2007Q1

REPORT INFORMATION
  Report Type: 
  Country: None (occurrence: None)
  Receive Date: 20070319
  Receipt Date: 20070307
  Transmission Date: 20070707
  Serious: Yes (Hospitalization)
  Sender: FDA-Public Use
  Company Number: US-BAXTER-2006BH014949

PATIENT
  Age: 56 Year
  Sex: Male

DRUGS (2)
  1. GAMMAGARD S/D [Suspect]
     Indication: CHRONIC INFLAMMATORY DEMYELINATING POLYRADICULONEUROPATHY
     Dosage: DOSE UNIT:UNKNOWN
     Route: 042
     Dates: start: 20061027
  2. GAMMAGARD S/D [Suspect]
     Indication: INTENTIONAL DRUG MISUSE
     Dosage: DOSE UNIT:UNKNOWN
     Route: 042
     Dates: start: 20061027

REACTIONS (1)
  - PULMONARY EMBOLISM [None]
